FAERS Safety Report 10013577 (Version 3)
Quarter: 2014Q1

REPORT INFORMATION
  Report Type: Report from Study
  Country: FR (occurrence: FR)
  Receive Date: 20140315
  Receipt Date: 20140324
  Transmission Date: 20141002
  Serious: Yes (Death)
  Sender: FDA-Public Use
  Company Number: FR-ROCHE-1342180

PATIENT
  Age: 67 Year
  Sex: Male

DRUGS (8)
  1. ZELBORAF [Suspect]
     Indication: NEOPLASM MALIGNANT
     Route: 048
     Dates: start: 20140115
  2. PLAVIX [Concomitant]
  3. KARDEGIC [Concomitant]
  4. TENORMINE [Concomitant]
  5. COVERAM [Concomitant]
  6. METFORMIN [Concomitant]
  7. LANTUS [Concomitant]
  8. ZOCOR [Concomitant]

REACTIONS (3)
  - Disease progression [Fatal]
  - Skin discolouration [Recovering/Resolving]
  - Diarrhoea [Not Recovered/Not Resolved]
